FAERS Safety Report 9836979 (Version 2)
Quarter: 2014Q2

REPORT INFORMATION
  Report Type: Spontaneous
  Country: US (occurrence: US)
  Receive Date: 20140123
  Receipt Date: 20140408
  Transmission Date: 20141212
  Serious: No
  Sender: FDA-Public Use
  Company Number: US-PFIZER INC-2014016966

PATIENT
  Age: 68 Year
  Sex: Male

DRUGS (2)
  1. SUTENT [Suspect]
     Indication: RENAL CANCER
     Dosage: 50 MG, 1X/DAY (CYCLIC, 4 WK ON,2 WKS OFF))
     Route: 048
     Dates: start: 20131012
  2. SUTENT [Suspect]
     Dosage: 50 MG, 1X/DAY (QD 4 WK ON, 2  WKS OFF)
     Route: 048

REACTIONS (2)
  - Glossodynia [Unknown]
  - Diarrhoea [Unknown]
